FAERS Safety Report 6299352-X (Version None)
Quarter: 2009Q3

REPORT INFORMATION
  Report Type: 
  Country: None (occurrence: None)
  Receive Date: 20090806
  Receipt Date: 20090729
  Transmission Date: 20100115
  Serious: Yes (Other)
  Sender: FDA-Public Use
  Company Number: US-ROCHE-638810

PATIENT
  Sex: Female
  Weight: 59 kg

DRUGS (6)
  1. BONIVA [Suspect]
     Indication: OSTEOPOROSIS
     Dosage: DOSE: 150 (UNIT NOT REPORTED)
     Route: 048
     Dates: start: 20060101, end: 20090510
  2. INSULIN [Concomitant]
     Dosage: FORM: SYRINGE
     Route: 058
     Dates: start: 19900101
  3. PREMARIN [Concomitant]
     Indication: OSTEOPOROSIS
     Dosage: DOSE: 0.9 (UNIT NOT REPORTED), PER DAY
     Route: 048
     Dates: start: 19950101
  4. SYNTHROID [Concomitant]
     Indication: HYPOTHYROIDISM
     Dosage: DOSE: 0.075 (UNIT NOT REPORTED), PER DAY
     Route: 048
     Dates: start: 19950101
  5. LISINOPRIL [Concomitant]
     Indication: HYPERTENSION
     Dosage: DOSE: 20 (UNIT NOT REPORTED), PER DAY
     Route: 048
     Dates: start: 20050101
  6. CELEBREX [Concomitant]
     Dosage: DOSE: 200 (UNIT NOT REPORTED), PER DAY
     Route: 048
     Dates: start: 20010101

REACTIONS (1)
  - FEMUR FRACTURE [None]
